FAERS Safety Report 14985547 (Version 1)
Quarter: 2018Q2

REPORT INFORMATION
  Report Type: Report from Study
  Country: IN (occurrence: IN)
  Receive Date: 20180607
  Receipt Date: 20180607
  Transmission Date: 20180711
  Serious: Yes (Hospitalization, Other)
  Sender: FDA-Public Use
  Company Number: IN-UCBSA-2018025137

PATIENT
  Sex: Male
  Weight: 93 kg

DRUGS (4)
  1. LAMITOR [Concomitant]
     Active Substance: LAMOTRIGINE
     Indication: PRODUCT USED FOR UNKNOWN INDICATION
     Dosage: 100 MG
  2. FRISIUM [Concomitant]
     Active Substance: CLOBAZAM
     Indication: PRODUCT USED FOR UNKNOWN INDICATION
     Dosage: 10 MG
  3. BRIVARACETAM EP [Suspect]
     Active Substance: BRIVARACETAM
     Indication: EPILEPSY
     Dosage: 50 MG, 2X/DAY (BID)
     Route: 048
     Dates: start: 2018
  4. CLONAZEPAM. [Concomitant]
     Active Substance: CLONAZEPAM
     Indication: PRODUCT USED FOR UNKNOWN INDICATION
     Dosage: 100 MG

REACTIONS (4)
  - Viral infection [Recovered/Resolved]
  - Dizziness [Not Recovered/Not Resolved]
  - Seizure [Unknown]
  - Somnolence [Unknown]

NARRATIVE: CASE EVENT DATE: 2018
